FAERS Safety Report 9601938 (Version 1)
Quarter: 2013Q4

REPORT INFORMATION
  Report Type: Spontaneous
  Country: IT (occurrence: None)
  Receive Date: 20131002
  Receipt Date: 20131002
  Transmission Date: 20140711
  Serious: Yes (Hospitalization)
  Sender: FDA-Public Use
  Company Number: FK201304306

PATIENT
  Age: 53 Year
  Sex: Female

DRUGS (3)
  1. OXALIPLATIN (MANUFACTURER UNKNOWN) (OXALIPLATIN) (OXALIPLATIN) [Suspect]
     Indication: COLON CANCER
     Dosage: 195 MG, 1 IN 1 D, INTRAVENOUS
     Dates: start: 20130902, end: 20130902
  2. AVASTIN (BEVACIZUMAB) (BEVACIZUMAB) [Suspect]
     Indication: COLON CANCER
     Dosage: 400 MG, 1 IN 1 D, INTRAVENOUS
     Dates: start: 20130902, end: 20130902
  3. XELODA [Suspect]
     Indication: COLON CANCER
     Dosage: 120 MG, 1 IN 1 D, ORAL
     Dates: start: 20130902, end: 20130902

REACTIONS (3)
  - Anaphylactic reaction [None]
  - Laryngospasm [None]
  - Tachycardia [None]
